FAERS Safety Report 20036254 (Version 5)
Quarter: 2022Q1

REPORT INFORMATION
  Report Type: Spontaneous
  Country: US (occurrence: US)
  Receive Date: 20211105
  Receipt Date: 20220201
  Transmission Date: 20220423
  Serious: Yes (Other)
  Sender: FDA-Public Use
  Company Number: US-GLAXOSMITHKLINE-US2021AMR224014

PATIENT
  Sex: Female

DRUGS (1)
  1. ZEJULA [Suspect]
     Active Substance: NIRAPARIB
     Indication: Ovarian cancer
     Dosage: 100 MG, QD
     Dates: start: 202106

REACTIONS (14)
  - Neuropathy peripheral [Not Recovered/Not Resolved]
  - Nausea [Recovered/Resolved]
  - Anxiety [Unknown]
  - Energy increased [Not Recovered/Not Resolved]
  - Blood pressure increased [Not Recovered/Not Resolved]
  - Insomnia [Unknown]
  - Lymphoedema [Not Recovered/Not Resolved]
  - Feeling abnormal [Unknown]
  - Condition aggravated [Not Recovered/Not Resolved]
  - Neuralgia [Unknown]
  - Productive cough [Not Recovered/Not Resolved]
  - Sneezing [Not Recovered/Not Resolved]
  - Nasal congestion [Not Recovered/Not Resolved]
  - Product dose omission issue [Unknown]
